FAERS Safety Report 8801930 (Version 1)
Quarter: 2012Q4

REPORT INFORMATION
  Report Type: 
  Country: DE (occurrence: PH)
  Receive Date: 20120921
  Receipt Date: 20120921
  Transmission Date: 20130627
  Serious: Yes (Hospitalization)
  Sender: FDA-Public Use
  Company Number: PH-FRI-1000038794

PATIENT
  Sex: Male

DRUGS (3)
  1. ROFLUMILAST [Suspect]
     Dosage: 500 mcg
     Dates: start: 201207, end: 201207
  2. LABA [Concomitant]
  3. LAMA [Concomitant]

REACTIONS (2)
  - Muscle disorder [Recovered/Resolved]
  - Decreased appetite [Recovered/Resolved]
